FAERS Safety Report 5534337-X (Version None)
Quarter: 2007Q4

REPORT INFORMATION
  Report Type: 
  Country: None (occurrence: None)
  Receive Date: 20071205
  Receipt Date: 20071128
  Transmission Date: 20080405
  Serious: Yes (Hospitalization)
  Sender: FDA-Public Use
  Company Number: PHBS2007DK20357

PATIENT
  Sex: Male

DRUGS (2)
  1. AMLODIPINE [Suspect]
     Indication: TYPE 1 DIABETES MELLITUS
     Dosage: UNK, UNK
     Dates: start: 20070607, end: 20070711
  2. DIOVAN [Suspect]
     Indication: HYPERTENSION
     Dosage: UNK, UNK
     Dates: start: 20070607, end: 20070711

REACTIONS (3)
  - ARTHRALGIA [None]
  - HIP ARTHROPLASTY [None]
  - PROCEDURAL PAIN [None]
